FAERS Safety Report 20867341 (Version 3)
Quarter: 2022Q3

REPORT INFORMATION
  Report Type: Report from Study
  Country: US (occurrence: US)
  Receive Date: 20220524
  Receipt Date: 20220914
  Transmission Date: 20221027
  Serious: Yes (Other)
  Sender: FDA-Public Use
  Company Number: US-BRISTOL-MYERS SQUIBB COMPANY-2022-025933

PATIENT
  Age: 68 Year
  Sex: Male
  Weight: 79.832 kg

DRUGS (2)
  1. POMALYST [Suspect]
     Active Substance: POMALIDOMIDE
     Indication: Plasma cell myeloma
     Dosage: FREQUENCY: 21 OUT OF 28 DAYS, ONGOING
     Route: 048
     Dates: start: 201810
  2. DEXAMETHASONE [Concomitant]
     Active Substance: DEXAMETHASONE
     Indication: Product used for unknown indication
     Route: 065

REACTIONS (5)
  - Cellulitis [Recovering/Resolving]
  - Fatigue [Unknown]
  - Blood glucose increased [Unknown]
  - Pain in extremity [Unknown]
  - Peripheral swelling [Unknown]
